FAERS Safety Report 4627655-0 (Version None)
Quarter: 2005Q2

REPORT INFORMATION
  Report Type: 
  Country: None (occurrence: None)
  Receive Date: 20050401
  Receipt Date: 20050319
  Transmission Date: 20051028
  Serious: Yes (Hospitalization)
  Sender: FDA-Public Use
  Company Number: A0550698A

PATIENT
  Age: 36 Year
  Sex: Female

DRUGS (2)
  1. CONTAC 12 HOUR [Suspect]
     Dosage: ORAL
     Route: 048
  2. EPHEDRINE (GENERIC) (EPHEDRINE) [Suspect]
     Dosage: ORAL
     Route: 048

REACTIONS (6)
  - ARTERY DISSECTION [None]
  - BRAIN MASS [None]
  - CEREBELLAR ARTERY OCCLUSION [None]
  - CEREBELLAR INFARCTION [None]
  - CEREBROVASCULAR ACCIDENT [None]
  - MIGRAINE [None]
